FAERS Safety Report 5899346-X (Version None)
Quarter: 2008Q3

REPORT INFORMATION
  Report Type: 
  Country: None (occurrence: None)
  Receive Date: 20080924
  Receipt Date: 20080911
  Transmission Date: 20090109
  Serious: Yes (Other)
  Sender: FDA-Public Use
  Company Number: 2007BI026739

PATIENT
  Age: 48 Year
  Sex: Female

DRUGS (2)
  1. TYSABRI [Suspect]
     Indication: MULTIPLE SCLEROSIS
     Dosage: 300 MG; QM; IV
     Route: 042
     Dates: start: 20070720, end: 20070914
  2. AVONEX [Concomitant]

REACTIONS (7)
  - ANXIETY [None]
  - BOWEL MOVEMENT IRREGULARITY [None]
  - DEPRESSION [None]
  - FATIGUE [None]
  - GASTROINTESTINAL DISORDER [None]
  - VAGINAL DISORDER [None]
  - VISUAL IMPAIRMENT [None]
